FAERS Safety Report 7740207-9 (Version None)
Quarter: 2011Q3

REPORT INFORMATION
  Report Type: 
  Country: None (occurrence: None)
  Receive Date: 20110909
  Receipt Date: 20110909
  Transmission Date: 20111222
  Serious: Yes (Other)
  Sender: FDA-Public Use
  Company Number: None

PATIENT
  Age: 44 Year
  Sex: Female
  Weight: 77.564 kg

DRUGS (1)
  1. NUVIGIL [Suspect]
     Indication: SLEEP APNOEA SYNDROME
     Dosage: 250 MG
     Route: 048
     Dates: start: 20100801, end: 20100907

REACTIONS (4)
  - TREMOR [None]
  - MUSCLE RIGIDITY [None]
  - CHEST PAIN [None]
  - DYSPNOEA [None]
